FAERS Safety Report 20328474 (Version 1)
Quarter: 2022Q1

REPORT INFORMATION
  Report Type: Spontaneous
  Country: US (occurrence: None)
  Receive Date: 20220112
  Receipt Date: 20220112
  Transmission Date: 20220423
  Serious: No
  Sender: FDA-Public Use
  Company Number: None

PATIENT
  Age: 66 Year
  Sex: Male

DRUGS (1)
  1. LISINOPRIL [Suspect]
     Active Substance: LISINOPRIL
     Indication: Hypertension
     Dosage: 20 MG  EVERY DAY PO
     Route: 048
     Dates: start: 20200714, end: 20211018

REACTIONS (1)
  - Angioedema [None]

NARRATIVE: CASE EVENT DATE: 20211018
